FAERS Safety Report 18656426 (Version 1)
Quarter: 2020Q4

REPORT INFORMATION
  Report Type: Spontaneous
  Country: US (occurrence: US)
  Receive Date: 20201223
  Receipt Date: 20201223
  Transmission Date: 20210114
  Serious: Yes (Other)
  Sender: FDA-Public Use
  Company Number: US-NAPPMUNDI-USA-2020-0152362

PATIENT
  Sex: Male
  Weight: 78 kg

DRUGS (3)
  1. PERCOCET [Suspect]
     Active Substance: ACETAMINOPHEN\OXYCODONE HYDROCHLORIDE
     Indication: BACK PAIN
     Dosage: 325 MG, UNK
     Route: 065
     Dates: start: 1998
  2. OXYCONTIN [Suspect]
     Active Substance: OXYCODONE HYDROCHLORIDE
     Indication: PRODUCT USED FOR UNKNOWN INDICATION
     Dosage: UNK
     Route: 048
  3. OXYCODONE HYDROCHLORIDE (SIMILAR TO NDA 22-272) [Suspect]
     Active Substance: OXYCODONE HYDROCHLORIDE
     Indication: BACK PAIN
     Dosage: UNK
     Route: 048
     Dates: start: 2001, end: 2002

REACTIONS (17)
  - Suicidal ideation [Unknown]
  - Nerve injury [Unknown]
  - Drug withdrawal syndrome [Unknown]
  - Pruritus [Not Recovered/Not Resolved]
  - Back disorder [Unknown]
  - Transfusion [Unknown]
  - Drug dependence [Unknown]
  - Pain [Unknown]
  - Abdominal discomfort [Not Recovered/Not Resolved]
  - Mental disorder [Unknown]
  - Hallucination [Not Recovered/Not Resolved]
  - Emotional distress [Unknown]
  - Gastric disorder [Unknown]
  - Unevaluable event [Unknown]
  - Drug ineffective [Not Recovered/Not Resolved]
  - Abnormal dreams [Not Recovered/Not Resolved]
  - Illness [Unknown]

NARRATIVE: CASE EVENT DATE: 2002
